FAERS Safety Report 9508520 (Version 1)
Quarter: 2013Q3

REPORT INFORMATION
  Report Type: Spontaneous
  Country: US (occurrence: US)
  Receive Date: 20130909
  Receipt Date: 20130909
  Transmission Date: 20140515
  Serious: Yes (Other)
  Sender: FDA-Public Use
  Company Number: US-ABBOTT-13P-163-1143678-00

PATIENT
  Age: 41 Year
  Sex: Male

DRUGS (1)
  1. ANDROGEL [Suspect]
     Indication: BLOOD TESTOSTERONE DECREASED
     Route: 061
     Dates: start: 201307, end: 201308

REACTIONS (1)
  - Anaphylactic reaction [Recovered/Resolved]
